FAERS Safety Report 24246817 (Version 1)
Quarter: 2024Q3

REPORT INFORMATION
  Report Type: Spontaneous
  Country: CN (occurrence: CN)
  Receive Date: 20240826
  Receipt Date: 20240826
  Transmission Date: 20241017
  Serious: Yes (Other)
  Sender: JIANGSU HANSOH PHARMACEUTICAL
  Company Number: CN-Jiangsu Hansoh Pharmaceutical Co., Ltd-2160834

PATIENT
  Age: 43 Year
  Sex: Male
  Weight: 50.9 kg

DRUGS (1)
  1. GEMCITABINE HYDROCHLORIDE [Suspect]
     Active Substance: GEMCITABINE HYDROCHLORIDE
     Indication: Keratinising squamous cell carcinoma of nasopharynx
     Route: 041
     Dates: start: 20240727, end: 20240727

REACTIONS (3)
  - Pruritus [Recovering/Resolving]
  - Off label use [Unknown]
  - Rash erythematous [Recovering/Resolving]

NARRATIVE: CASE EVENT DATE: 20240730
